FAERS Safety Report 7658171-X (Version None)
Quarter: 2011Q3

REPORT INFORMATION
  Report Type: 
  Country: None (occurrence: None)
  Receive Date: 20110802
  Receipt Date: 20110718
  Transmission Date: 20111222
  Serious: Yes (Life-Threatening, Hospitalization)
  Sender: FDA-Public Use
  Company Number: 2011MA008988

PATIENT
  Age: 68 Year
  Sex: Male

DRUGS (6)
  1. BU (NO PREF. NAME) [Suspect]
  2. TACROLIMUS [Suspect]
     Indication: PROPHYLAXIS
  3. TACROLIMUS [Suspect]
     Indication: GRAFT VERSUS HOST DISEASE
  4. FLUDARABINE PHOSPHATE [Suspect]
  5. MYCOPHENOLATE MOFETIL [Suspect]
     Indication: PROPHYLAXIS
  6. MYCOPHENOLATE MOFETIL [Suspect]
     Indication: GRAFT VERSUS HOST DISEASE

REACTIONS (5)
  - STEM CELL TRANSPLANT [None]
  - ENGRAFTMENT SYNDROME [None]
  - DISSEMINATED INTRAVASCULAR COAGULATION [None]
  - HYPERCOAGULATION [None]
  - PULMONARY OEDEMA [None]
